FAERS Safety Report 8643681 (Version 3)
Quarter: 2013Q2

REPORT INFORMATION
  Report Type: Report from Study
  Country: SE (occurrence: SE)
  Receive Date: 20120629
  Receipt Date: 20130503
  Transmission Date: 20140414
  Serious: Yes (Death)
  Sender: FDA-Public Use
  Company Number: SE-ROCHE-1082171

PATIENT
  Sex: Female

DRUGS (4)
  1. ROACTEMRA [Suspect]
     Indication: RHEUMATOID ARTHRITIS
     Route: 042
     Dates: start: 20100630, end: 20120614
  2. EZETROL [Concomitant]
     Route: 065
  3. AMLODIPIN [Concomitant]
     Route: 065
  4. METOPROLOL AL [Concomitant]
     Route: 065

REACTIONS (3)
  - Cardiac disorder [Fatal]
  - Angiopathy [Fatal]
  - Transaminases increased [Unknown]
